FAERS Safety Report 9305842 (Version 1)
Quarter: 2013Q2

REPORT INFORMATION
  Report Type: Spontaneous
  Country: US (occurrence: US)
  Receive Date: 20130523
  Receipt Date: 20130523
  Transmission Date: 20140414
  Serious: Yes (Other)
  Sender: FDA-Public Use
  Company Number: US-COVIDIEN/TYCO HEALTHCARE/MALLINCKRODT-T201302348

PATIENT
  Age: 32 Year
  Sex: Female
  Weight: 117.91 kg

DRUGS (3)
  1. FENTANYL TRANSDERMAL SYSTEM [Suspect]
     Indication: BACK PAIN
     Dosage: 75 UG/HR, Q72 HRS
     Route: 062
     Dates: start: 201303
  2. FENTANYL TRANSDERMAL SYSTEM [Suspect]
     Dosage: 50 UG/HR, UNK
     Route: 062
     Dates: start: 2012, end: 201303
  3. PERCOCET                           /00446701/ [Concomitant]
     Indication: BACK PAIN
     Dosage: 1 TABLET X2,  QD
     Route: 048

REACTIONS (1)
  - Paranoia [Not Recovered/Not Resolved]
